FAERS Safety Report 24251566 (Version 5)
Quarter: 2024Q4

REPORT INFORMATION
  Report Type: Report from Study
  Country: US (occurrence: US)
  Receive Date: 20240827
  Receipt Date: 20241018
  Transmission Date: 20250114
  Serious: No
  Sender: SANDOZ
  Company Number: US-SANDOZ-SDZ2024US074446

PATIENT
  Age: 10 Year
  Sex: Male

DRUGS (4)
  1. OMNITROPE [Suspect]
     Active Substance: SOMATROPIN
     Indication: Short stature
     Dosage: 1 MG QD
     Route: 058
  2. OMNITROPE [Suspect]
     Active Substance: SOMATROPIN
     Indication: Short stature
     Dosage: 1 MG QD
     Route: 058
  3. OMNITROPE [Suspect]
     Active Substance: SOMATROPIN
     Dosage: 0.2 MG, QD
     Route: 058
     Dates: start: 20240916, end: 20241017
  4. OMNITROPE [Suspect]
     Active Substance: SOMATROPIN
     Dosage: 0.2 MG, QD
     Route: 058
     Dates: start: 20240916, end: 20241017

REACTIONS (8)
  - Injection site discharge [Unknown]
  - Injection site haemorrhage [Recovered/Resolved]
  - Accidental exposure to product [Unknown]
  - Wrong technique in device usage process [Unknown]
  - Incorrect dose administered [Unknown]
  - Product storage error [Unknown]
  - Device leakage [Unknown]
  - Inappropriate schedule of product administration [Not Recovered/Not Resolved]

NARRATIVE: CASE EVENT DATE: 20240819
